FAERS Safety Report 5026054-X (Version None)
Quarter: 2006Q2

REPORT INFORMATION
  Report Type: 
  Country: None (occurrence: None)
  Receive Date: 20060614
  Receipt Date: 20060602
  Transmission Date: 20061013
  Serious: Yes (Death)
  Sender: FDA-Public Use
  Company Number: DK-BRISTOL-MYERS SQUIBB COMPANY-13400650

PATIENT
  Age: 67 Year
  Sex: Female

DRUGS (16)
  1. ABILIFY [Suspect]
     Indication: MANIA
     Route: 048
  2. METFORMIN HYDROCHLORIDE [Concomitant]
     Route: 048
  3. BENDROFLUMETHIAZIDE + KCL [Concomitant]
  4. ORPHENADRINE [Concomitant]
  5. FLUOXETINE HCL [Concomitant]
  6. PANTOPRAZOLE [Concomitant]
  7. SIMVASTATIN [Concomitant]
  8. ACETYLCYSTEINE [Concomitant]
  9. ACETYLCYSTEINE [Concomitant]
  10. BUDESONIDE [Concomitant]
  11. LAMOTRIGINE [Concomitant]
  12. CHLORPROTHIXEN [Concomitant]
  13. ZUCLOPENTHIXOL ACETATE [Concomitant]
  14. GLIMEPIRIDE [Concomitant]
  15. TERBUTALINE [Concomitant]
  16. TIOTROPIUM BROMIDE [Concomitant]

REACTIONS (1)
  - DEATH [None]
